FAERS Safety Report 10643601 (Version 1)
Quarter: 2014Q4

REPORT INFORMATION
  Report Type: Spontaneous
  Country: US (occurrence: US)
  Receive Date: 20141210
  Receipt Date: 20141210
  Transmission Date: 20150529
  Serious: Yes (Hospitalization)
  Sender: FDA-Public Use
  Company Number: US-GILEAD-2014-0126442

PATIENT
  Age: 61 Year
  Sex: Male

DRUGS (16)
  1. LETAIRIS [Suspect]
     Active Substance: AMBRISENTAN
     Indication: PULMONARY ARTERIAL HYPERTENSION
     Dosage: 5 MG, QD
     Route: 065
     Dates: start: 20121116
  2. METRONIDAZOLE. [Concomitant]
     Active Substance: METRONIDAZOLE
  3. ALBUTEROL                          /00139501/ [Concomitant]
     Active Substance: ALBUTEROL
  4. ASPIRIN                            /00002701/ [Concomitant]
     Active Substance: ASPIRIN
  5. ACIPHEX [Concomitant]
     Active Substance: RABEPRAZOLE SODIUM
  6. NORCO [Concomitant]
     Active Substance: ACETAMINOPHEN\HYDROCODONE BITARTRATE
  7. XANAX [Concomitant]
     Active Substance: ALPRAZOLAM
  8. SINGULAIR [Concomitant]
     Active Substance: MONTELUKAST SODIUM
  9. LASIX [Concomitant]
     Active Substance: FUROSEMIDE
  10. LISINOPRIL. [Concomitant]
     Active Substance: LISINOPRIL
  11. DOCUSATE [Concomitant]
     Active Substance: DOCUSATE
  12. LEVEMIR [Concomitant]
     Active Substance: INSULIN DETEMIR
  13. PROPOXYPHENE. [Concomitant]
     Active Substance: PROPOXYPHENE HYDROCHLORIDE
  14. ALDACTONE [Concomitant]
     Active Substance: SPIRONOLACTONE
  15. GLIPIZIDE. [Concomitant]
     Active Substance: GLIPIZIDE
  16. TRICOR                             /00090101/ [Concomitant]

REACTIONS (1)
  - Chills [Unknown]

NARRATIVE: CASE EVENT DATE: 20141202
